FAERS Safety Report 4531254-9 (Version None)
Quarter: 2004Q4

REPORT INFORMATION
  Report Type: 
  Country: None (occurrence: None)
  Receive Date: 20041126
  Receipt Date: 20040122
  Transmission Date: 20050328
  Serious: Yes (Hospitalization)
  Sender: FDA-Public Use
  Company Number: APP200400082

PATIENT
  Age: 72 Year
  Sex: Male

DRUGS (16)
  1. FLUROURACIL INJECTION, USP (FLUOROURACIL) [Suspect]
     Indication: COLON CANCER STAGE III
     Dosage: 1035 MG (1035 MG, 1 IN 1 D), INTRAVENOUS
     Route: 042
     Dates: start: 20040105, end: 20040109
  2. LEUCOVORIN CALCIUM [Concomitant]
  3. FERROUS SULFATE TAB [Concomitant]
  4. WARFARIN (WARFARIN) [Concomitant]
  5. SENNOSIDE A (SENNOSIDE A) [Concomitant]
  6. FUROSEMIDE [Concomitant]
  7. ALBUTEROL INHALER (SALBUTAMOL) [Concomitant]
  8. GLYBURIDE [Concomitant]
  9. ISOSORBIDE (ISOSORBIDE) [Concomitant]
  10. HYDROCODONE /APAP (VICODIN) [Concomitant]
  11. DIPHENHYDRAMINE HCL [Concomitant]
  12. ALBUMINIUM AND MAGNESIUM (ALUDROX ^WYETH^) [Concomitant]
  13. LIDOCAINE [Concomitant]
  14. INSULIN [Concomitant]
  15. LOPERIMIDE (LOPERAMIDE) [Concomitant]
  16. PROMETHAZINE [Concomitant]

REACTIONS (5)
  - DIARRHOEA [None]
  - GASTROENTERITIS [None]
  - HEADACHE [None]
  - NAUSEA [None]
  - VOMITING [None]
